FAERS Safety Report 7902430-X (Version None)
Quarter: 2011Q4

REPORT INFORMATION
  Report Type: 
  Country: None (occurrence: None)
  Receive Date: 20111108
  Receipt Date: 20111028
  Transmission Date: 20120403
  Serious: Yes (Hospitalization)
  Sender: FDA-Public Use
  Company Number: FR-CELGENEUS-056-21880-11103365

PATIENT
  Sex: Male

DRUGS (8)
  1. PERMIXON [Concomitant]
     Route: 065
  2. DEXAMETHASONE [Concomitant]
     Route: 048
     Dates: start: 20100701
  3. ATORVASTATIN CALCIUM [Concomitant]
     Route: 065
  4. AMLODIPINE BESYLATE [Concomitant]
     Route: 065
  5. ASPIRIN [Concomitant]
     Route: 065
  6. ATENOLOL [Concomitant]
     Route: 065
  7. LANTUS [Concomitant]
     Route: 065
  8. REVLIMID [Suspect]
     Route: 048
     Dates: start: 20100701

REACTIONS (1)
  - SQUAMOUS CELL CARCINOMA OF SKIN [None]
